FAERS Safety Report 9629621 (Version 1)
Quarter: 2013Q4

REPORT INFORMATION
  Report Type: Spontaneous
  Country: US (occurrence: US)
  Receive Date: 20131017
  Receipt Date: 20131017
  Transmission Date: 20140711
  Serious: Yes (Other)
  Sender: FDA-Public Use
  Company Number: US-B.I. PHARMACEUTICALS,INC./RIDGEFIELD-2013-BI-32967YA

PATIENT
  Sex: Female

DRUGS (5)
  1. TAMSULOSIN CAPSULES [Suspect]
     Indication: PRODUCT USED FOR UNKNOWN INDICATION
  2. PROGRAF (TACROLIMUS) CAPSULE [Suspect]
     Indication: RENAL TRANSPLANT
     Route: 048
     Dates: start: 2005
  3. MYFORTIC [Suspect]
     Indication: PRODUCT USED FOR UNKNOWN INDICATION
     Route: 065
  4. TOPROL [Suspect]
     Indication: PRODUCT USED FOR UNKNOWN INDICATION
  5. LEVATOL [Suspect]
     Indication: PRODUCT USED FOR UNKNOWN INDICATION

REACTIONS (1)
  - Renal disorder [Unknown]
